FAERS Safety Report 6701832-7 (Version None)
Quarter: 2010Q2

REPORT INFORMATION
  Report Type: 
  Country: None (occurrence: None)
  Receive Date: 20100427
  Receipt Date: 20100413
  Transmission Date: 20101027
  Serious: Yes (Hospitalization)
  Sender: FDA-Public Use
  Company Number: 2010US000023

PATIENT
  Age: 67 Year
  Sex: Male

DRUGS (3)
  1. ENTEREG [Suspect]
     Indication: POSTOPERATIVE ILEUS
     Dosage: 12 MG; ORAL
     Route: 048
  2. PLAVIX [Concomitant]
  3. ASPIRIN LOW [Concomitant]

REACTIONS (1)
  - POST PROCEDURAL MYOCARDIAL INFARCTION [None]
